FAERS Safety Report 8080757-1 (Version None)
Quarter: 2012Q1

REPORT INFORMATION
  Report Type: 
  Country: None (occurrence: None)
  Receive Date: 20120130
  Receipt Date: 20120125
  Transmission Date: 20120608
  Serious: Yes (Other)
  Sender: FDA-Public Use
  Company Number: PHHY2010CA83256

PATIENT
  Sex: Female

DRUGS (1)
  1. ZOLEDRONOC ACID [Suspect]
     Indication: OSTEOPOROSIS
     Dosage: UNK UKN, UNK
     Route: 042
     Dates: start: 20100920

REACTIONS (6)
  - FATIGUE [None]
  - MYALGIA [None]
  - MALAISE [None]
  - PAIN [None]
  - BONE PAIN [None]
  - DRUG INTOLERANCE [None]
